FAERS Safety Report 18290988 (Version 3)
Quarter: 2021Q1

REPORT INFORMATION
  Report Type: Report from Study
  Country: CA (occurrence: CA)
  Receive Date: 20200921
  Receipt Date: 20210122
  Transmission Date: 20210419
  Serious: Yes (Hospitalization, Other)
  Sender: FDA-Public Use
  Company Number: CA-JNJFOC-20200922155

PATIENT
  Age: 40 Year
  Sex: Female
  Weight: 97.6 kg

DRUGS (1)
  1. REMICADE [Suspect]
     Active Substance: INFLIXIMAB
     Indication: ANKYLOSING SPONDYLITIS
     Dosage: REBOOKED HER SEPT 12TH APT TO SEPT 22
     Route: 042
     Dates: start: 20181120

REACTIONS (3)
  - Hysterectomy [Recovering/Resolving]
  - Drug ineffective [Unknown]
  - Procedural pain [Recovered/Resolved]

NARRATIVE: CASE EVENT DATE: 20200909
